FAERS Safety Report 15280399 (Version 1)
Quarter: 2018Q4

REPORT INFORMATION
  Report Type: Report from Study
  Country: ES (occurrence: ES)
  Receive Date: 20180815
  Receipt Date: 20180815
  Transmission Date: 20190204
  Serious: Yes (Hospitalization)
  Sender: FDA-Public Use
  Company Number: ES-GLAXOSMITHKLINE-ES2018144050

PATIENT
  Age: 80 Year
  Sex: Female

DRUGS (5)
  1. CEFTRIAXONA [Suspect]
     Active Substance: CEFTRIAXONE
     Indication: POSTOPERATIVE WOUND INFECTION
     Dosage: UNK
     Route: 065
     Dates: start: 20170621, end: 20170626
  2. CEFUROXIME SODIUM. [Suspect]
     Active Substance: CEFUROXIME SODIUM
     Indication: POSTOPERATIVE WOUND INFECTION
     Dosage: UNK
     Route: 042
     Dates: start: 20170629, end: 20170705
  3. SULFAMETOXAZOL + TRIMETHOPRIM [Suspect]
     Active Substance: SULFAMETHOXAZOLE\TRIMETHOPRIM
     Indication: POSTOPERATIVE WOUND INFECTION
     Dosage: 800/160MG
     Route: 065
     Dates: start: 20170605, end: 20170724
  4. PREDNISONA [Concomitant]
     Active Substance: PREDNISONE
     Indication: SOLID ORGAN TRANSPLANT
     Dosage: 20 MG, 1 VEZ AL D?A
     Route: 048
     Dates: start: 20170609
  5. CEFUROXIME SODIUM. [Suspect]
     Active Substance: CEFUROXIME SODIUM
     Dosage: 500MG, 2 TIMES A DAY
     Route: 042
     Dates: start: 20170629, end: 20170705

REACTIONS (1)
  - Acute generalised exanthematous pustulosis [Recovered/Resolved]

NARRATIVE: CASE EVENT DATE: 20170725
